FAERS Safety Report 7818321-9 (Version None)
Quarter: 2011Q4

REPORT INFORMATION
  Report Type: 
  Country: None (occurrence: None)
  Receive Date: 20111017
  Receipt Date: 20111012
  Transmission Date: 20120403
  Serious: No
  Sender: FDA-Public Use
  Company Number: US-PFIZER INC-2011198176

PATIENT
  Age: 79 Year
  Sex: Female

DRUGS (10)
  1. IBUPROFEN [Suspect]
     Indication: MYALGIA
     Dosage: 800 MG, UNK
  2. INDOCIN [Suspect]
     Dosage: UNK
  3. IBUPROFEN (ADVIL) [Suspect]
     Indication: ARTHROPATHY
  4. IBUPROFEN (ADVIL) [Suspect]
     Indication: OSTEOPOROSIS
     Dosage: 400 MG, 2X/DAY
  5. IBUPROFEN (ADVIL) [Suspect]
     Indication: ARTHRITIS
  6. MOBIC [Suspect]
     Indication: OSTEOPOROSIS
     Dosage: UNK
     Dates: start: 20110101, end: 20110101
  7. IBUPROFEN (ADVIL) [Suspect]
     Indication: MYALGIA
  8. MOBIC [Suspect]
     Indication: ARTHRITIS
  9. NAPROSYN [Suspect]
     Dosage: UNK
  10. IBUPROFEN [Suspect]
     Indication: INFLAMMATION

REACTIONS (3)
  - DRUG EFFECT DECREASED [None]
  - OVERDOSE [None]
  - ABDOMINAL DISCOMFORT [None]
